FAERS Safety Report 7200397-3 (Version None)
Quarter: 2010Q4

REPORT INFORMATION
  Report Type: 
  Country: None (occurrence: None)
  Receive Date: 20101214
  Receipt Date: 20101126
  Transmission Date: 20110411
  Serious: Yes (Other)
  Sender: FDA-Public Use
  Company Number: 2010P1003020

PATIENT
  Sex: Female

DRUGS (3)
  1. KETODERM TOPICAL CREAM (NO PREF. NAME) [Suspect]
     Indication: VULVOVAGINAL MYCOTIC INFECTION
     Dates: start: 20101118, end: 20101122
  2. NYSTATIN [Concomitant]
  3. PREV MEDS [Concomitant]

REACTIONS (4)
  - ALANINE AMINOTRANSFERASE INCREASED [None]
  - ASPARTATE AMINOTRANSFERASE INCREASED [None]
  - GAMMA-GLUTAMYLTRANSFERASE INCREASED [None]
  - URTICARIA [None]
